FAERS Safety Report 7970266-X (Version None)
Quarter: 2011Q4

REPORT INFORMATION
  Report Type: 
  Country: None (occurrence: None)
  Receive Date: 20111212
  Receipt Date: 20111207
  Transmission Date: 20120403
  Serious: Yes (Life-Threatening, Hospitalization, Disabling, Other)
  Sender: FDA-Public Use
  Company Number: US-JNJFOC-20110803909

PATIENT
  Sex: Male
  Weight: 81.65 kg

DRUGS (11)
  1. INVEGA SUSTENNA [Suspect]
     Indication: SCHIZOAFFECTIVE DISORDER
     Route: 030
     Dates: start: 20110729
  2. INVEGA [Suspect]
     Indication: PRODUCT USED FOR UNKNOWN INDICATION
     Route: 048
     Dates: start: 20110729
  3. ABILIFY [Suspect]
     Indication: PRODUCT USED FOR UNKNOWN INDICATION
     Route: 065
  4. RISPERDAL [Concomitant]
     Route: 048
  5. AMBIEN [Concomitant]
     Indication: SLEEP DISORDER
     Route: 048
  6. CYMBALTA [Concomitant]
     Indication: DEPRESSION
     Dosage: AM
     Route: 048
  7. INVEGA SUSTENNA [Suspect]
     Route: 030
     Dates: start: 20110805, end: 20110812
  8. INVEGA SUSTENNA [Suspect]
     Indication: PSYCHOTIC DISORDER
     Route: 030
     Dates: start: 20110729
  9. INVEGA SUSTENNA [Suspect]
     Route: 030
     Dates: start: 20110805, end: 20110812
  10. CYMBALTA [Concomitant]
     Dosage: PM
     Route: 048
  11. RISPERDAL [Concomitant]
     Route: 048

REACTIONS (7)
  - SUICIDAL IDEATION [None]
  - MAJOR DEPRESSION [None]
  - PSYCHOMOTOR HYPERACTIVITY [None]
  - HUNGER [None]
  - HALLUCINATION, AUDITORY [None]
  - ANGER [None]
  - AGITATION [None]
